FAERS Safety Report 19932354 (Version 1)
Quarter: 2021Q4

REPORT INFORMATION
  Report Type: Spontaneous
  Country: US (occurrence: US)
  Receive Date: 20211006
  Receipt Date: 20211006
  Transmission Date: 20220303
  Serious: No
  Sender: FDA-Public Use
  Company Number: None

PATIENT
  Sex: Female

DRUGS (5)
  1. FORTEO [Suspect]
     Active Substance: TERIPARATIDE
     Indication: Osteoporosis
     Route: 058
     Dates: start: 20210819
  2. ESTRADIOL [Concomitant]
     Active Substance: ESTRADIOL
  3. LISINOPRIL [Concomitant]
     Active Substance: LISINOPRIL
  4. TIZANIDINE [Concomitant]
     Active Substance: TIZANIDINE
  5. TRAZODONE [Concomitant]
     Active Substance: TRAZODONE HYDROCHLORIDE

REACTIONS (3)
  - Arthralgia [None]
  - Therapy interrupted [None]
  - Visual impairment [None]
